FAERS Safety Report 9257226 (Version 1)
Quarter: 2013Q2

REPORT INFORMATION
  Report Type: Spontaneous
  Country: JP (occurrence: JP)
  Receive Date: 20130426
  Receipt Date: 20130426
  Transmission Date: 20140414
  Serious: Yes (Other)
  Sender: FDA-Public Use
  Company Number: PHHY2013JP039446

PATIENT
  Age: 47 Year
  Sex: Female

DRUGS (2)
  1. ZOLEDRONIC ACID [Suspect]
     Indication: METASTASES TO BONE
     Dosage: UNK UKN, WEEKLY
  2. FUROSEMIDE [Concomitant]
     Dosage: UNK UKN, UNK

REACTIONS (2)
  - Hypercalcaemia of malignancy [Unknown]
  - Blood parathyroid hormone increased [Unknown]
